FAERS Safety Report 18966810 (Version 7)
Quarter: 2021Q4

REPORT INFORMATION
  Report Type: Spontaneous
  Country: JP (occurrence: JP)
  Receive Date: 20210304
  Receipt Date: 20211018
  Transmission Date: 20220303
  Serious: Yes (Hospitalization, Other)
  Sender: FDA-Public Use
  Company Number: JP-BRISTOL-MYERS SQUIBB COMPANY-BMS-2021-013354

PATIENT
  Age: 64 Year
  Sex: Male

DRUGS (3)
  1. OPDIVO [Suspect]
     Active Substance: NIVOLUMAB
     Indication: Metastatic renal cell carcinoma
     Dosage: 240 MILLIGRAM
     Route: 041
     Dates: start: 20201223, end: 20210128
  2. OPDIVO [Suspect]
     Active Substance: NIVOLUMAB
     Dosage: 240 MILLIGRAM,MONOTHERAPY
     Route: 041
     Dates: start: 20210302, end: 20210621
  3. YERVOY [Suspect]
     Active Substance: IPILIMUMAB
     Indication: Metastatic renal cell carcinoma
     Dosage: 1 MILLIGRAM/KILOGRAM
     Route: 041
     Dates: start: 20201223, end: 20210128

REACTIONS (4)
  - Lymphocytic hypophysitis [Recovering/Resolving]
  - Adrenocorticotropic hormone deficiency [Recovering/Resolving]
  - Silent thyroiditis [Recovering/Resolving]
  - Malignant neoplasm progression [Unknown]

NARRATIVE: CASE EVENT DATE: 20210122
